FAERS Safety Report 20766883 (Version 12)
Quarter: 2023Q1

REPORT INFORMATION
  Report Type: Report from Study
  Country: CN (occurrence: CN)
  Receive Date: 20220429
  Receipt Date: 20230330
  Transmission Date: 20230418
  Serious: Yes (Other)
  Sender: FDA-Public Use
  Company Number: CN-TAKEDA-2022TUS002150

PATIENT
  Age: 64 Year
  Sex: Female
  Weight: 54 kg

DRUGS (23)
  1. IXAZOMIB [Suspect]
     Active Substance: IXAZOMIB
     Indication: Plasma cell myeloma
     Dosage: 4 MILLIGRAM, 1/WEEK
     Route: 048
     Dates: start: 20211020
  2. DEXAMETHASONE SODIUM PHOSPHATE [Suspect]
     Active Substance: DEXAMETHASONE SODIUM PHOSPHATE
     Dosage: 20 MILLIGRAM, QD
     Route: 042
     Dates: start: 20211020, end: 20211020
  3. DEXAMETHASONE SODIUM PHOSPHATE [Suspect]
     Active Substance: DEXAMETHASONE SODIUM PHOSPHATE
     Dosage: 40 MILLIGRAM
     Route: 042
     Dates: start: 20220126, end: 20220126
  4. DOXORUBICIN HYDROCHLORIDE [Suspect]
     Active Substance: DOXORUBICIN HYDROCHLORIDE
     Indication: Plasma cell myeloma
     Dosage: 30 MILLIGRAM, QD
     Route: 042
     Dates: start: 20211020, end: 20211020
  5. AMMONIUM GLYCYRRHIZATE\CYSTEINE [Concomitant]
     Active Substance: AMMONIUM GLYCYRRHIZATE\CYSTEINE
     Indication: Prophylaxis
     Dosage: 100 MILLILITER, QD
     Route: 042
     Dates: start: 20211018, end: 20211020
  6. AMMONIUM GLYCYRRHIZATE\CYSTEINE [Concomitant]
     Active Substance: AMMONIUM GLYCYRRHIZATE\CYSTEINE
     Indication: Drug-induced liver injury
     Dosage: 100 MILLILITER, QD
     Route: 042
     Dates: start: 20211022, end: 20211027
  7. LANSOPRAZOLE [Concomitant]
     Active Substance: LANSOPRAZOLE
     Indication: Gastric disorder
     Dosage: 30 MILLIGRAM, QD
     Route: 042
     Dates: start: 20211018, end: 20211027
  8. TRAMADOL HYDROCHLORIDE [Concomitant]
     Active Substance: TRAMADOL HYDROCHLORIDE
     Indication: Analgesic therapy
     Dosage: 0.1 GRAM, TID
     Route: 048
     Dates: start: 20211018, end: 20211022
  9. IRBESARTAN [Concomitant]
     Active Substance: IRBESARTAN
     Indication: Hypertension
     Dosage: 0.15 GRAM, QD
     Route: 048
     Dates: start: 20211019, end: 20211103
  10. CALCITRIOL [Concomitant]
     Active Substance: CALCITRIOL
     Indication: Osteoporosis
     Dosage: 0.25 GRAM, QD
     Route: 048
     Dates: start: 20211019, end: 20211027
  11. SODIUM BICARBONATE [Concomitant]
     Active Substance: SODIUM BICARBONATE
     Indication: Blood alkalinisation therapy
     Dosage: 100 MILLILITER, QD
     Route: 042
     Dates: start: 20211019, end: 20211023
  12. CEFOPERAZONE\TAZOBACTAM SODIUM [Concomitant]
     Active Substance: CEFOPERAZONE\TAZOBACTAM SODIUM
     Indication: Pneumonia
     Dosage: 2 GRAM
     Route: 042
     Dates: start: 20211019, end: 20211027
  13. CINOBUFOTALIN [Concomitant]
     Active Substance: CINOBUFOTALIN
     Indication: Analgesic therapy
     Dosage: 0.5 GRAM, TID
     Route: 048
     Dates: start: 20211019, end: 20211026
  14. CARBAZOCHROME SODIUM SULFONATE [Concomitant]
     Active Substance: CARBAZOCHROME SODIUM SULFONATE
     Indication: Haemorrhage prophylaxis
     Dosage: 60 MILLIGRAM, QD
     Route: 042
     Dates: start: 20211019, end: 20211022
  15. BENZBROMARONE [Concomitant]
     Active Substance: BENZBROMARONE
     Indication: Hyperuricaemia
     Dosage: 50 MILLIGRAM, QD
     Route: 048
     Dates: start: 20211019, end: 20211023
  16. ETHAMSYLATE [Concomitant]
     Active Substance: ETHAMSYLATE
     Indication: Haemorrhage prophylaxis
     Dosage: 1000 MILLILITER, QD
     Route: 042
     Dates: start: 20211019, end: 20211027
  17. VITAMIN C [Concomitant]
     Active Substance: ASCORBIC ACID
     Indication: Haemorrhage prophylaxis
     Dosage: 1 GRAM, QD
     Route: 042
     Dates: start: 20211019, end: 20211027
  18. CANNABIS SATIVA SEED\HERBALS [Concomitant]
     Active Substance: CANNABIS SATIVA SEED\HERBALS
     Indication: Constipation prophylaxis
     Dosage: 1.8 GRAM, BID
     Route: 048
     Dates: start: 20211020, end: 20211022
  19. ACYCLOVIR [Concomitant]
     Active Substance: ACYCLOVIR
     Indication: Infection prophylaxis
     Dosage: 0.4 GRAM, TID
     Route: 048
     Dates: start: 20211020, end: 20211025
  20. AZASETRON HYDROCHLORIDE [Concomitant]
     Active Substance: AZASETRON HYDROCHLORIDE
     Indication: Prophylaxis of nausea and vomiting
     Dosage: 10 MILLIGRAM, QD
     Route: 042
     Dates: start: 20211020, end: 20211027
  21. NITROGLYCERIN [Concomitant]
     Active Substance: NITROGLYCERIN
     Indication: Hypertension
     Dosage: 0.5 MILLIGRAM, QD
     Route: 060
     Dates: start: 20211020, end: 20211020
  22. LIDOCAINE HYDROCHLORIDE [Concomitant]
     Active Substance: LIDOCAINE HYDROCHLORIDE
     Indication: Local anaesthesia
     Dosage: 5 MILLILITER, QD
     Route: 065
     Dates: start: 20211020, end: 20211020
  23. GLYCERIN [Concomitant]
     Active Substance: GLYCERIN
     Indication: Dyschezia
     Dosage: 20 MILLILITER, QD
     Route: 054
     Dates: start: 20211021, end: 20211021

REACTIONS (32)
  - Cataract [Not Recovered/Not Resolved]
  - Xerophthalmia [Not Recovered/Not Resolved]
  - Hepatic failure [Not Recovered/Not Resolved]
  - Chronic hepatitis B [Not Recovered/Not Resolved]
  - Myelosuppression [Not Recovered/Not Resolved]
  - Panniculitis [Not Recovered/Not Resolved]
  - Lacunar infarction [Not Recovered/Not Resolved]
  - Hypokalaemia [Recovered/Resolved]
  - Hypoproteinaemia [Not Recovered/Not Resolved]
  - Productive cough [Recovered/Resolved]
  - Restrictive pulmonary disease [Not Recovered/Not Resolved]
  - Intervertebral disc protrusion [Not Recovered/Not Resolved]
  - Gingival bleeding [Recovered/Resolved]
  - Hyponatraemia [Recovered/Resolved]
  - Hypochloraemia [Recovered/Resolved]
  - Asthenia [Recovered/Resolved]
  - Nasal obstruction [Recovered/Resolved]
  - Pyrexia [Recovered/Resolved]
  - Hypocalcaemia [Recovered/Resolved]
  - Rash [Recovered/Resolved]
  - Arthralgia [Recovered/Resolved]
  - Hiccups [Recovered/Resolved]
  - Haematuria [Recovered/Resolved]
  - Stomatitis [Recovering/Resolving]
  - Laryngopharyngitis [Recovered/Resolved]
  - Enteritis [Recovered/Resolved]
  - Constipation [Recovered/Resolved]
  - Blood glucose abnormal [Recovered/Resolved]
  - C-reactive protein increased [Not Recovered/Not Resolved]
  - QRS axis abnormal [Recovered/Resolved]
  - Electrocardiogram T wave abnormal [Recovered/Resolved]
  - Off label use [Unknown]

NARRATIVE: CASE EVENT DATE: 20211020
